FAERS Safety Report 5008624-8 (Version None)
Quarter: 2006Q2

REPORT INFORMATION
  Report Type: 
  Country: None (occurrence: None)
  Receive Date: 20060523
  Receipt Date: 20060516
  Transmission Date: 20061013
  Serious: Yes (Hospitalization)
  Sender: FDA-Public Use
  Company Number: FR-BRISTOL-MYERS SQUIBB COMPANY-13381785

PATIENT
  Age: 55 Year
  Sex: Male

DRUGS (6)
  1. SINEMET [Suspect]
     Indication: PARKINSON'S DISEASE
     Route: 048
     Dates: end: 20060221
  2. MIANSERIN [Suspect]
  3. CELANCE [Suspect]
     Indication: PARKINSON'S DISEASE
     Dates: end: 20060226
  4. STALEVO 100 [Suspect]
     Dosage: REDUCED TO 5/D
  5. VALIUM [Suspect]
  6. APOKINON [Concomitant]
     Indication: PARKINSON'S DISEASE

REACTIONS (4)
  - AGGRESSION [None]
  - AGITATION [None]
  - DELIRIUM [None]
  - HALLUCINATION [None]
